FAERS Safety Report 9877504 (Version 1)
Quarter: 2014Q1

REPORT INFORMATION
  Report Type: Spontaneous
  Country: US (occurrence: US)
  Receive Date: 20140206
  Receipt Date: 20140206
  Transmission Date: 20141002
  Serious: No
  Sender: FDA-Public Use
  Company Number: US-ACORDA-ACO_38513_2013

PATIENT
  Sex: Male
  Weight: 68.27 kg

DRUGS (4)
  1. AMPYRA [Suspect]
     Indication: GAIT DISTURBANCE
     Dosage: 10 MG, Q 12 HRS
     Route: 048
     Dates: start: 2010
  2. COPAXONE [Concomitant]
     Indication: MULTIPLE SCLEROSIS
     Dosage: UNK, QD
     Route: 051
  3. ASPIRIN [Concomitant]
     Indication: HEART RATE IRREGULAR
     Dosage: 325 MG, QD
     Route: 048
  4. ASPIRIN [Concomitant]
     Indication: PROPHYLAXIS

REACTIONS (2)
  - Therapeutic response unexpected [Unknown]
  - No adverse event [Unknown]
